FAERS Safety Report 7154676 (Version 17)
Quarter: 2013Q4

REPORT INFORMATION
  Report Type: Spontaneous
  Country: US (occurrence: US)
  Receive Date: 20091021
  Receipt Date: 20131101
  Transmission Date: 20140711
  Serious: Yes (Death, Hospitalization, Other)
  Sender: FDA-Public Use
  Company Number: PHEH2009US13747

PATIENT
  Age: 54 Year
  Sex: Female

DRUGS (16)
  1. ZOMETA [Suspect]
     Indication: METASTASES TO BONE
     Dosage: 1 DF, QMO
     Route: 042
     Dates: start: 2003
  2. LISINOPRIL [Concomitant]
     Indication: HYPERTENSION
  3. HYDROCHLOROTHIAZIDE [Concomitant]
     Indication: HYPERTENSION
  4. TYKERB [Concomitant]
     Indication: BREAST CANCER METASTATIC
  5. XELODA [Concomitant]
  6. CLINDAMYCIN [Concomitant]
  7. NYSTATIN [Concomitant]
  8. WELLBUTRIN [Concomitant]
  9. AUGMENTIN                               /SCH/ [Concomitant]
  10. HERCEPTIN ^GENENTECH^ [Concomitant]
  11. NAVELBINE ^ASTA MEDICA^ [Concomitant]
  12. PERCOCET [Concomitant]
  13. OXYCONTIN [Concomitant]
  14. FASLODEX [Concomitant]
  15. CELEXA [Concomitant]
  16. ARIMIDEX [Concomitant]

REACTIONS (84)
  - Death [Fatal]
  - Mental status changes [Unknown]
  - Dehydration [Unknown]
  - Osteonecrosis of jaw [Unknown]
  - Injury [Unknown]
  - Pain [Unknown]
  - Anxiety [Unknown]
  - Anhedonia [Unknown]
  - Infection [Unknown]
  - Impaired healing [Unknown]
  - Stomatitis [Unknown]
  - Exposed bone in jaw [Unknown]
  - Osteomyelitis [Unknown]
  - Swelling face [Unknown]
  - Toothache [Unknown]
  - Abscess [Unknown]
  - Inflammation [Unknown]
  - Denture wearer [Unknown]
  - Hypoaesthesia [Unknown]
  - Hypertension [Unknown]
  - Neoplasm progression [Unknown]
  - Malignant neoplasm progression [Unknown]
  - Metastases to central nervous system [Unknown]
  - Extradural neoplasm [Unknown]
  - Metastases to lung [Unknown]
  - Metastases to spine [Unknown]
  - Pleural effusion [Unknown]
  - Pulmonary embolism [Unknown]
  - Interstitial lung disease [Unknown]
  - Dyspnoea [Unknown]
  - Renal failure acute [Unknown]
  - Spondylitis [Unknown]
  - Spinal osteoarthritis [Unknown]
  - Sinusitis [Unknown]
  - Otitis media [Unknown]
  - Diarrhoea haemorrhagic [Unknown]
  - Chest pain [Unknown]
  - Cough [Unknown]
  - Chronic obstructive pulmonary disease [Unknown]
  - Intervertebral disc protrusion [Unknown]
  - Spinal compression fracture [Unknown]
  - Vision blurred [Unknown]
  - Vitreous floaters [Unknown]
  - Amblyopia [Unknown]
  - Collagen-vascular disease [Unknown]
  - Atelectasis [Unknown]
  - Aortic arteriosclerosis [Unknown]
  - Vertebral foraminal stenosis [Unknown]
  - Hyperkeratosis [Unknown]
  - Vulvar dysplasia [Unknown]
  - Headache [Unknown]
  - Depression [Unknown]
  - Fatigue [Unknown]
  - Herpes zoster [Unknown]
  - Muscle strain [Unknown]
  - Muscle spasms [Unknown]
  - Nasal congestion [Unknown]
  - Uterine leiomyoma [Unknown]
  - Pelvic pain [Unknown]
  - Back pain [Unknown]
  - Urinary incontinence [Unknown]
  - Tumour necrosis [Unknown]
  - Breast calcifications [Unknown]
  - Osteopenia [Unknown]
  - Hyperlipidaemia [Unknown]
  - Costochondritis [Unknown]
  - Presyncope [Unknown]
  - Back injury [Unknown]
  - Kyphosis [Unknown]
  - Insomnia [Unknown]
  - Hot flush [Unknown]
  - Swelling [Recovering/Resolving]
  - Pain in extremity [Unknown]
  - Erythema [Unknown]
  - Musculoskeletal chest pain [Unknown]
  - Paraesthesia [Unknown]
  - Radiculopathy [Unknown]
  - Radicular pain [Recovered/Resolved]
  - Mass [Unknown]
  - Jaw disorder [Unknown]
  - Bone lesion [Unknown]
  - Loose tooth [Unknown]
  - Dental caries [Unknown]
  - Gingival pain [Unknown]
